FAERS Safety Report 7564699-3 (Version None)
Quarter: 2011Q2

REPORT INFORMATION
  Report Type: 
  Country: None (occurrence: None)
  Receive Date: 20110622
  Receipt Date: 20100914
  Transmission Date: 20111010
  Serious: Yes (Other)
  Sender: FDA-Public Use
  Company Number: US-MYLANLABS-2010S1016643

PATIENT
  Age: 30 Year
  Sex: Male

DRUGS (9)
  1. DIVALPROEX SODIUM [Concomitant]
     Dosage: 1000MG QAM, 1500MG QHS
     Route: 048
  2. TRANSDERM SCOP [Concomitant]
  3. CLOZAPINE [Suspect]
     Route: 048
     Dates: end: 20100906
  4. CLOZAPINE [Suspect]
     Route: 048
     Dates: start: 20100909
  5. CLOZAPINE [Suspect]
     Route: 048
     Dates: start: 20100909
  6. CLOZAPINE [Suspect]
     Route: 048
     Dates: end: 20100906
  7. CITALOPRAM HYDROBROMIDE [Concomitant]
     Route: 048
  8. DESMOPRESSIN [Concomitant]
     Route: 048
  9. POLYETHYLENE GLYCOL [Concomitant]
     Route: 048

REACTIONS (1)
  - GRANULOCYTOPENIA [None]
